FAERS Safety Report 24067142 (Version 2)
Quarter: 2024Q3

REPORT INFORMATION
  Report Type: Spontaneous
  Country: US (occurrence: US)
  Receive Date: 20240709
  Receipt Date: 20240731
  Transmission Date: 20241017
  Serious: No
  Sender: ROCHE
  Company Number: US-ROCHE-10000015471

PATIENT
  Sex: Female

DRUGS (3)
  1. HERCEPTIN [Suspect]
     Active Substance: TRASTUZUMAB
     Indication: Product used for unknown indication
     Route: 065
  2. XELODA [Suspect]
     Active Substance: CAPECITABINE
     Indication: Product used for unknown indication
     Route: 065
  3. TUKYSA [Suspect]
     Active Substance: TUCATINIB
     Indication: Product used for unknown indication
     Dosage: 4 TAB EVERY 12 HOURS 50MG
     Route: 048

REACTIONS (6)
  - Mucosal inflammation [Unknown]
  - Neutropenia [Unknown]
  - Fatigue [Unknown]
  - Anaemia [Unknown]
  - Thrombocytopenia [Unknown]
  - Dizziness [Unknown]
